FAERS Safety Report 4961003-1 (Version None)
Quarter: 2006Q1

REPORT INFORMATION
  Report Type: 
  Country: None (occurrence: None)
  Receive Date: 20060201
  Receipt Date: 20051204
  Transmission Date: 20060701
  Serious: No
  Sender: FDA-Public Use
  Company Number: 2005PV005346

PATIENT
  Age: 52 Year
  Sex: Male
  Weight: 95.709 kg

DRUGS (3)
  1. BYETTA [Suspect]
     Indication: DIABETES MELLITUS NON-INSULIN-DEPENDENT
     Dosage: 5 MCG; BID; SC
     Route: 058
     Dates: start: 20051204
  2. METFORMIN [Concomitant]
  3. . [Concomitant]

REACTIONS (3)
  - DIZZINESS [None]
  - INJECTION SITE COLDNESS [None]
  - NAUSEA [None]
